FAERS Safety Report 14812609 (Version 2)
Quarter: 2018Q2

REPORT INFORMATION
  Report Type: Report from Study
  Country: NL (occurrence: NL)
  Receive Date: 20180425
  Receipt Date: 20180509
  Transmission Date: 20180711
  Serious: Yes (Hospitalization, Other)
  Sender: FDA-Public Use
  Company Number: NL-BEH-2018090064

PATIENT
  Age: 68 Year
  Sex: Female
  Weight: 104 kg

DRUGS (10)
  1. COLECALCIFEROL [Concomitant]
     Active Substance: CHOLECALCIFEROL
  2. PRIVIGEN [Suspect]
     Active Substance: HUMAN IMMUNOGLOBULIN G
     Dosage: 80 G, TOT
     Route: 042
     Dates: start: 20180315, end: 20180315
  3. CUTIVATE [Concomitant]
     Active Substance: FLUTICASONE PROPIONATE
  4. PARACETAMOL [Concomitant]
     Active Substance: ACETAMINOPHEN
  5. FLUVOXAMINE [Concomitant]
     Active Substance: FLUVOXAMINE
  6. PRIVIGEN [Suspect]
     Active Substance: HUMAN IMMUNOGLOBULIN G
     Indication: DERMATOMYOSITIS
     Dosage: 160 G, TOT
     Route: 042
     Dates: start: 20180222, end: 20180223
  7. METOPROLOL SUCCINATE. [Concomitant]
     Active Substance: METOPROLOL SUCCINATE
  8. FRAXIPARIN                         /01437702/ [Concomitant]
  9. CUTIVATE [Concomitant]
     Active Substance: FLUTICASONE PROPIONATE
  10. EMOVATE                            /00485702/ [Concomitant]
     Active Substance: CLOBETASONE BUTYRATE

REACTIONS (2)
  - Anaemia [Recovering/Resolving]
  - Dehydration [Recovered/Resolved]

NARRATIVE: CASE EVENT DATE: 20180409
